FAERS Safety Report 6097608-7 (Version None)
Quarter: 2009Q1

REPORT INFORMATION
  Report Type: 
  Country: None (occurrence: None)
  Receive Date: 20090227
  Receipt Date: 20081224
  Transmission Date: 20090719
  Serious: No
  Sender: FDA-Public Use
  Company Number: A0761796A

PATIENT
  Sex: Female

DRUGS (3)
  1. IMITREX [Suspect]
     Indication: MIGRAINE
  2. UNKNOWN MEDICATION [Concomitant]
     Indication: PAIN
  3. TREXIMET [Concomitant]

REACTIONS (1)
  - THERAPEUTIC RESPONSE DECREASED [None]
